FAERS Safety Report 7420992-6 (Version None)
Quarter: 2011Q2

REPORT INFORMATION
  Report Type: 
  Country: None (occurrence: None)
  Receive Date: 20110418
  Receipt Date: 20110209
  Transmission Date: 20111010
  Serious: Yes (Other)
  Sender: FDA-Public Use
  Company Number: PHHY2011FR12219

PATIENT
  Sex: Male

DRUGS (2)
  1. SIMVASTATIN [Suspect]
     Dosage: 10 MG
  2. SIMVASTATIN [Suspect]
     Dosage: 20 MG
     Dates: start: 19960101

REACTIONS (11)
  - RENAL FAILURE ACUTE [None]
  - DYSPNOEA [None]
  - EXTRASYSTOLES [None]
  - MUSCULAR WEAKNESS [None]
  - MUSCLE ATROPHY [None]
  - PHOTOSENSITIVITY REACTION [None]
  - SKIN EXFOLIATION [None]
  - WEIGHT DECREASED [None]
  - ORTHOSTATIC HYPOTENSION [None]
  - FATIGUE [None]
  - BURNS SECOND DEGREE [None]
